FAERS Safety Report 8496454-4 (Version None)
Quarter: 2012Q3

REPORT INFORMATION
  Report Type: 
  Country: None (occurrence: None)
  Receive Date: 20120709
  Receipt Date: 20120629
  Transmission Date: 20120928
  Serious: Yes (Hospitalization)
  Sender: FDA-Public Use
  Company Number: US-ABBOTT-12P-163-0952096-00

PATIENT
  Sex: Female
  Weight: 43.584 kg

DRUGS (9)
  1. ADVAIR DISKUS 100/50 [Suspect]
     Indication: CHRONIC OBSTRUCTIVE PULMONARY DISEASE
     Dosage: 250/50
     Dates: start: 20111201, end: 20120301
  2. OXYGEN [Concomitant]
     Indication: CHRONIC OBSTRUCTIVE PULMONARY DISEASE
  3. EXCEDRIN (MIGRAINE) [Concomitant]
     Indication: PRODUCT USED FOR UNKNOWN INDICATION
  4. XANAX [Concomitant]
     Indication: ANXIETY
     Dosage: 0.25 DAILY; AS REQUIRED
  5. ALBUTEROL [Concomitant]
     Indication: CHRONIC OBSTRUCTIVE PULMONARY DISEASE
     Dates: start: 20120301
  6. NICOTIN PATCH [Concomitant]
     Indication: PRODUCT USED FOR UNKNOWN INDICATION
     Dosage: STEP DOWN PATCH SYSTEM, ONCE DAILY
  7. SPIRIVA [Suspect]
     Indication: CHRONIC OBSTRUCTIVE PULMONARY DISEASE
     Dates: start: 20120301
  8. DILTIAZEM [Concomitant]
     Indication: HYPERTENSION
     Dates: start: 20120301
  9. HUMIRA [Suspect]
     Indication: PSORIATIC ARTHROPATHY
     Dates: start: 20060101, end: 20120101

REACTIONS (5)
  - PSORIASIS [None]
  - CHRONIC OBSTRUCTIVE PULMONARY DISEASE [None]
  - EYE MOVEMENT DISORDER [None]
  - ARTHRALGIA [None]
  - STOMATITIS [None]
